FAERS Safety Report 9116535 (Version 5)
Quarter: 2014Q2

REPORT INFORMATION
  Report Type: Report from Study
  Country: CA (occurrence: CA)
  Receive Date: 20130225
  Receipt Date: 20140505
  Transmission Date: 20141212
  Serious: Yes (Death, Disabling, Other)
  Sender: FDA-Public Use
  Company Number: CA-CELGENEUS-028-C5013-13023021

PATIENT
  Age: 81 Year
  Sex: Female
  Weight: 83.2 kg

DRUGS (26)
  1. CC-5013 [Suspect]
     Indication: MYELODYSPLASTIC SYNDROME
     Dosage: 10 MILLIGRAM
     Route: 048
     Dates: start: 20120117
  2. CC-5013 [Suspect]
     Dosage: 5 MILLIGRAM
     Route: 048
     Dates: start: 20130114, end: 20130215
  3. POTASSIUM CHLORIDE [Concomitant]
     Indication: HYPOKALAEMIA
     Dosage: 2400 MILLIGRAM
     Route: 065
     Dates: start: 2009
  4. AMLODIPINE [Concomitant]
     Indication: HYPERTENSION
     Dosage: 5 MILLIGRAM
     Route: 065
     Dates: start: 2005
  5. IRBESARTAN [Concomitant]
     Indication: HYPERTENSION
     Dosage: 300 MILLIGRAM
     Route: 065
     Dates: start: 2009
  6. PANTOPRAZOL [Concomitant]
     Indication: HIATUS HERNIA
     Dosage: 80 MILLIGRAM
     Route: 065
     Dates: start: 2008, end: 20120408
  7. ASA [Concomitant]
     Indication: HYPERCHOLESTEROLAEMIA
     Dosage: 81 MILLIGRAM
     Route: 065
     Dates: start: 2005
  8. FUROSEMIDE [Concomitant]
     Indication: OEDEMA PERIPHERAL
     Dosage: 5 MILLIGRAM
     Route: 065
     Dates: start: 2011
  9. FLUTICASONE/SALMETEROL [Concomitant]
     Indication: CHRONIC OBSTRUCTIVE PULMONARY DISEASE
     Dosage: 600 MICROGRAM
     Route: 065
     Dates: start: 2008
  10. PREDNISONE [Concomitant]
     Indication: MYALGIA
     Dosage: 5 MILLIGRAM
     Route: 065
     Dates: start: 2011
  11. RISEDRONATE [Concomitant]
     Indication: OSTEOARTHRITIS
     Dosage: 35 MILLIGRAM
     Route: 065
     Dates: start: 2011
  12. CALCIUM [Concomitant]
     Indication: OSTEOARTHRITIS
     Dosage: 1000 MILLIGRAM
     Route: 065
     Dates: start: 2011
  13. VITAMIN D [Concomitant]
     Indication: OSTEOARTHRITIS
     Dosage: 1000 IU (INTERNATIONAL UNIT)
     Route: 065
     Dates: start: 2011, end: 20120323
  14. TRIAMCINOLONE [Concomitant]
     Indication: PSORIASIS
     Dosage: 2 PERCENT
     Route: 065
     Dates: start: 20120216
  15. ACETAMINOPHEN/TYLENOL ARTHRITS [Concomitant]
     Indication: THORACIC VERTEBRAL FRACTURE
     Dosage: 650 MILLIGRAM
     Route: 065
     Dates: start: 20120214
  16. BETAMETHASONE VALERATE [Concomitant]
     Indication: PSORIASIS
     Dosage: .2 PERCENT
     Route: 065
     Dates: start: 20120315
  17. CALCITONIN [Concomitant]
     Indication: OSTEOARTHRITIS
     Dosage: 600 IU (INTERNATIONAL UNIT)
     Route: 065
     Dates: start: 20120323
  18. ACETAMINOPHEN [Concomitant]
     Indication: LUMBAR VERTEBRAL FRACTURE
     Dosage: 650 MILLIGRAM
     Route: 065
     Dates: start: 20120320, end: 20120403
  19. ACETAMINOPHEN [Concomitant]
     Indication: BACK PAIN
     Dosage: 650 MILLIGRAM
     Route: 065
     Dates: start: 20120426
  20. ACETAMINOPHEN [Concomitant]
     Dosage: 650 MILLIGRAM
     Route: 065
     Dates: start: 20121118
  21. DIMENHYDRINATE [Concomitant]
     Indication: NAUSEA
     Dosage: 50 MILLIGRAM
     Route: 065
     Dates: start: 20120502
  22. DIMENHYDRINATE [Concomitant]
     Indication: INFLUENZA LIKE ILLNESS
     Dosage: 50 MILLIGRAM
     Route: 065
     Dates: start: 20121101, end: 20121103
  23. TRAMADOL HYDROCHLORIDE [Concomitant]
     Indication: BACK PAIN
     Dosage: 200 MILLIGRAM
     Route: 065
     Dates: start: 20120528
  24. TRAMADOL HYDROCHLORIDE [Concomitant]
     Dosage: 200 MILLIGRAM
     Route: 065
     Dates: start: 20120718
  25. LOPERAMIDE HYDROCHLORIDE [Concomitant]
     Indication: DIARRHOEA
     Dosage: 2 MILLIGRAM
     Route: 065
     Dates: start: 20121010
  26. ARANESP [Concomitant]
     Indication: PRODUCT USED FOR UNKNOWN INDICATION
     Dosage: 150-300MCG
     Route: 065
     Dates: start: 201101, end: 201103

REACTIONS (1)
  - Invasive ductal breast carcinoma [Fatal]
